FAERS Safety Report 4646358-X (Version None)
Quarter: 2005Q2

REPORT INFORMATION
  Report Type: 
  Country: None (occurrence: None)
  Receive Date: 20050422
  Receipt Date: 20050422
  Transmission Date: 20051028
  Serious: Yes (Hospitalization)
  Sender: FDA-Public Use
  Company Number: None

PATIENT
  Age: 47 Year
  Sex: Male
  Weight: 83 kg

DRUGS (8)
  1. TRAZODONE [Suspect]
  2. GATIFLOXACIN [Concomitant]
  3. PERPHENAZINE AND AMITRIPTYLINE HCL [Concomitant]
  4. HYDROXYZINE [Concomitant]
  5. ETODOLAC [Concomitant]
  6. SERTRALINE HCL [Concomitant]
  7. MAGNESIUM HYDROXIDE TAB [Concomitant]
  8. ACETAMINOPHEN (INPT-UD) [Concomitant]

REACTIONS (1)
  - PRIAPISM [None]
